FAERS Safety Report 7818938-1 (Version None)
Quarter: 2011Q4

REPORT INFORMATION
  Report Type: 
  Country: None (occurrence: None)
  Receive Date: 20111017
  Receipt Date: 20111017
  Transmission Date: 20120403
  Serious: No
  Sender: FDA-Public Use
  Company Number: None

PATIENT
  Sex: Female
  Weight: 60.782 kg

DRUGS (1)
  1. KEPPRA [Suspect]
     Indication: CONVULSION
     Dosage: 259MG PO BID
     Route: 048
     Dates: start: 20110531, end: 20110630

REACTIONS (4)
  - ANXIETY [None]
  - TREMOR [None]
  - DYSKINESIA [None]
  - COGWHEEL RIGIDITY [None]
